FAERS Safety Report 6506080-1 (Version None)
Quarter: 2009Q4

REPORT INFORMATION
  Report Type: 
  Country: None (occurrence: None)
  Receive Date: 20091217
  Receipt Date: 20091217
  Transmission Date: 20100525
  Serious: Yes (Hospitalization)
  Sender: FDA-Public Use
  Company Number: None

PATIENT
  Age: 73 Year
  Sex: Male

DRUGS (2)
  1. CETUXIMAB BRISTOL-MYER SQUIBB [Suspect]
     Indication: NON-SMALL CELL LUNG CANCER METASTATIC
     Dosage: 250MG/M2 WEEKLY IV
     Route: 042
     Dates: start: 20091028, end: 20091202
  2. ERLOTINIB OSI PHARMACEUTICAL [Suspect]
     Indication: NON-SMALL CELL LUNG CANCER METASTATIC
     Dosage: 150MG DAILY PO
     Route: 048
     Dates: start: 20091028, end: 20091208

REACTIONS (4)
  - DYSPNOEA [None]
  - NAUSEA [None]
  - PERFORMANCE STATUS DECREASED [None]
  - VOMITING [None]
